FAERS Safety Report 5680557-3 (Version None)
Quarter: 2008Q1

REPORT INFORMATION
  Report Type: 
  Country: None (occurrence: None)
  Receive Date: 20080326
  Receipt Date: 20080318
  Transmission Date: 20080703
  Serious: Yes (Hospitalization)
  Sender: FDA-Public Use
  Company Number: US-JNJFOC-20080304690

PATIENT
  Age: 54 Year
  Sex: Female

DRUGS (1)
  1. CALCIUM CARBONATE [Suspect]
     Indication: DYSPEPSIA
     Dosage: LARGE DOSES

REACTIONS (3)
  - HIPPOCAMPAL SCLEROSIS [None]
  - MILK-ALKALI SYNDROME [None]
  - STATUS EPILEPTICUS [None]
